FAERS Safety Report 20094135 (Version 1)
Quarter: 2021Q4

REPORT INFORMATION
  Report Type: Spontaneous
  Country: US (occurrence: US)
  Receive Date: 20211122
  Receipt Date: 20211122
  Transmission Date: 20220303
  Serious: Yes (Hospitalization)
  Sender: FDA-Public Use
  Company Number: US-JNJFOC-20211124815

PATIENT
  Age: 36 Year
  Sex: Female
  Weight: 64.5 kg

DRUGS (1)
  1. TYLENOL PM [Suspect]
     Active Substance: ACETAMINOPHEN\DIPHENHYDRAMINE
     Indication: Suicide attempt
     Dosage: 50 TABLETS; TOTAL DOSE OF ACETAMINOPHEN 25000 MG/DIPHENHYDRAMINE 1250 MG IN 1 DAY
     Route: 048
     Dates: start: 2000, end: 2000

REACTIONS (3)
  - Suicide attempt [Unknown]
  - Acute hepatic failure [Unknown]
  - Intentional overdose [Unknown]
